FAERS Safety Report 9993700 (Version 2)
Quarter: 2014Q2

REPORT INFORMATION
  Report Type: Spontaneous
  Country: US (occurrence: US)
  Receive Date: 20140310
  Receipt Date: 20140407
  Transmission Date: 20141212
  Serious: No
  Sender: FDA-Public Use
  Company Number: US-B.I. PHARMACEUTICALS,INC./RIDGEFIELD-2014-BI-09293BP

PATIENT
  Age: 64 Year
  Sex: Female

DRUGS (8)
  1. SPIRIVA [Suspect]
     Indication: CHRONIC OBSTRUCTIVE PULMONARY DISEASE
     Dosage: 18 MCG
     Route: 055
     Dates: start: 20140220
  2. ALBUTEROL [Concomitant]
     Route: 055
  3. SERTRALINE [Concomitant]
     Route: 048
  4. OXYCODONE [Concomitant]
     Route: 048
  5. ALBUTEROL NEBULIZER [Concomitant]
     Route: 055
  6. LOSARTAN [Concomitant]
     Indication: HYPERTENSION
     Route: 048
  7. XANAX [Concomitant]
     Dosage: 3 MG
     Route: 048
  8. FLEXERIL [Concomitant]
     Route: 048

REACTIONS (3)
  - Drug ineffective [Not Recovered/Not Resolved]
  - Product quality issue [Recovered/Resolved]
  - Product quality issue [Recovered/Resolved]
